FAERS Safety Report 14649401 (Version 3)
Quarter: 2019Q1

REPORT INFORMATION
  Report Type: Spontaneous
  Country: FR (occurrence: FR)
  Receive Date: 20180316
  Receipt Date: 20190117
  Transmission Date: 20190417
  Serious: Yes (Other)
  Sender: FDA-Public Use
  Company Number: FR-JNJFOC-20141203612

PATIENT

DRUGS (4)
  1. INFLIXIMAB [Suspect]
     Active Substance: INFLIXIMAB
     Indication: CROHN^S DISEASE
     Route: 042
  2. ADALIMUMAB [Suspect]
     Active Substance: ADALIMUMAB
     Indication: CROHN^S DISEASE
     Route: 065
  3. STELARA [Suspect]
     Active Substance: USTEKINUMAB
     Indication: CROHN^S DISEASE
     Route: 058
     Dates: start: 201103
  4. STELARA [Suspect]
     Active Substance: USTEKINUMAB
     Indication: ANORECTAL DISORDER
     Route: 058
     Dates: start: 201103

REACTIONS (7)
  - Lung infection [Unknown]
  - Off label use [Unknown]
  - Acne [Unknown]
  - Myalgia [Unknown]
  - Product use in unapproved indication [Unknown]
  - Hidradenitis [Unknown]
  - Therapeutic response decreased [Unknown]
